FAERS Safety Report 8088308-2 (Version None)
Quarter: 2012Q1

REPORT INFORMATION
  Report Type: 
  Country: None (occurrence: None)
  Receive Date: 20120128
  Receipt Date: 20110422
  Transmission Date: 20120608
  Serious: No
  Sender: FDA-Public Use
  Company Number: US-ABBOTT-11P-163-0721348-00

PATIENT
  Age: 73 Year
  Sex: Female

DRUGS (3)
  1. CELEBREX [Concomitant]
     Indication: ARTHRITIS
     Route: 048
  2. METHOTREXATE [Concomitant]
     Indication: PSORIASIS
     Route: 048
  3. HUMIRA [Suspect]
     Indication: PSORIASIS
     Dates: start: 20100501

REACTIONS (2)
  - ARTHRODESIS [None]
  - DRUG INEFFECTIVE [None]
